FAERS Safety Report 5095843-8 (Version None)
Quarter: 2006Q3

REPORT INFORMATION
  Report Type: 
  Country: None (occurrence: None)
  Receive Date: 20060905
  Receipt Date: 20060830
  Transmission Date: 20061208
  Serious: Yes (Death)
  Sender: FDA-Public Use
  Company Number: US-BAYER-200613701BCC

PATIENT
  Sex: Female

DRUGS (1)
  1. ALKA-SELTZER GOLD ANTACID [Suspect]
     Indication: RESTLESS LEGS SYNDROME
     Route: 048

REACTIONS (3)
  - BREAST CANCER [None]
  - BREAST CANCER FEMALE [None]
  - RESTLESS LEGS SYNDROME [None]
